FAERS Safety Report 22590905 (Version 3)
Quarter: 2024Q1

REPORT INFORMATION
  Report Type: Spontaneous
  Country: BR (occurrence: None)
  Receive Date: 20230612
  Receipt Date: 20240314
  Transmission Date: 20240410
  Serious: Yes (Hospitalization, Other)
  Sender: FDA-Public Use
  Company Number: 2023A132787

PATIENT
  Age: 17700 Day
  Sex: Male
  Weight: 79 kg

DRUGS (24)
  1. METOPROLOL SUCCINATE [Suspect]
     Active Substance: METOPROLOL SUCCINATE
     Dosage: A TABLET
     Route: 048
  2. CALQUENCE [Suspect]
     Active Substance: ACALABRUTINIB
     Indication: Mantle cell lymphoma
     Dosage: TWO TABLETS
     Route: 048
     Dates: start: 2020
  3. ROSUVASTATIN [Suspect]
     Active Substance: ROSUVASTATIN
     Route: 048
  4. DECADRON [Concomitant]
     Active Substance: DEXAMETHASONE
     Dosage: 1 AND A HALF TABLET
  5. VASTAREL [Concomitant]
     Active Substance: TRIMETAZIDINE DIHYDROCHLORIDE
  6. LOSARTAN [Concomitant]
     Active Substance: LOSARTAN
  7. BACTRIM [Concomitant]
     Active Substance: SULFAMETHOXAZOLE\TRIMETHOPRIM
  8. MONOCORDIL [Concomitant]
     Active Substance: ISOSORBIDE MONONITRATE
  9. VALACYCLOVIR [Concomitant]
     Active Substance: VALACYCLOVIR HYDROCHLORIDE
  10. AZITHROMYCIN [Concomitant]
     Active Substance: AZITHROMYCIN
  11. TREZOR [Concomitant]
     Indication: Mantle cell lymphoma
     Dosage: FOUR TABLETS
  12. TREZOR [Concomitant]
     Indication: Mantle cell lymphoma
     Dosage: FOUR TABLETS
  13. CARDIZEM [Concomitant]
     Active Substance: DILTIAZEM HYDROCHLORIDE
     Dosage: A TABLET
  14. PHENOBARBITAL [Concomitant]
     Active Substance: PHENOBARBITAL
     Dosage: A TABLET
  15. PHENOBARBITAL [Concomitant]
     Active Substance: PHENOBARBITAL
     Dosage: A TABLET
  16. ANAFRANIL [Concomitant]
     Active Substance: CLOMIPRAMINE HYDROCHLORIDE
     Dosage: A TABLET
  17. ANAFRANIL [Concomitant]
     Active Substance: CLOMIPRAMINE HYDROCHLORIDE
     Dosage: A TABLET
  18. XARELTO [Concomitant]
     Active Substance: RIVAROXABAN
     Dosage: A TABLET
  19. ALTHIAZIDE\SPIRONOLACTONE [Concomitant]
     Active Substance: ALTHIAZIDE\SPIRONOLACTONE
     Dosage: A TABLET
  20. AZITHROMYCIN DIHYDRATE [Concomitant]
     Active Substance: AZITHROMYCIN DIHYDRATE
  21. SPIRONOLACTONE [Concomitant]
     Active Substance: SPIRONOLACTONE
  22. LOSARTAN [Concomitant]
     Active Substance: LOSARTAN
  23. VENCLEXTA [Concomitant]
     Active Substance: VENETOCLAX
  24. VALACYCLOVIR HYDROCHLORIDE [Concomitant]
     Active Substance: VALACYCLOVIR HYDROCHLORIDE

REACTIONS (5)
  - Mantle cell lymphoma [Unknown]
  - Pneumonia [Recovered/Resolved]
  - Dizziness [Not Recovered/Not Resolved]
  - Asthenia [Not Recovered/Not Resolved]
  - Anaemia [Not Recovered/Not Resolved]

NARRATIVE: CASE EVENT DATE: 20070101
